FAERS Safety Report 8412909-2 (Version None)
Quarter: 2012Q2

REPORT INFORMATION
  Report Type: 
  Country: None (occurrence: None)
  Receive Date: 20120605
  Receipt Date: 20120525
  Transmission Date: 20120825
  Serious: No
  Sender: FDA-Public Use
  Company Number: US-AMGEN-USASP2012033078

PATIENT
  Age: 68 Year
  Sex: Male

DRUGS (1)
  1. ENBREL [Suspect]
     Indication: PSORIASIS
     Dosage: 25 MG, QWK
     Dates: start: 20111024

REACTIONS (4)
  - VISION BLURRED [None]
  - RHINORRHOEA [None]
  - SNEEZING [None]
  - FATIGUE [None]
